APPROVED DRUG PRODUCT: RETROVIR
Active Ingredient: ZIDOVUDINE
Strength: 300MG **Federal Register determination that product was not discontinued or withdrawn for safety or effectiveness reasons**
Dosage Form/Route: TABLET;ORAL
Application: N020518 | Product #002
Applicant: VIIV HEALTHCARE CO
Approved: Oct 4, 1996 | RLD: Yes | RS: No | Type: DISCN